FAERS Safety Report 17649729 (Version 2)
Quarter: 2020Q3

REPORT INFORMATION
  Report Type: Spontaneous
  Country: US (occurrence: US)
  Receive Date: 20200409
  Receipt Date: 20200825
  Transmission Date: 20201102
  Serious: No
  Sender: FDA-Public Use
  Company Number: US-PFIZER INC-2019317905

PATIENT
  Age: 70 Year
  Sex: Male
  Weight: 68.04 kg

DRUGS (3)
  1. EMCYT [Suspect]
     Active Substance: ESTRAMUSTINE PHOSPHATE SODIUM
     Indication: PROSTATE CANCER
     Dosage: 280 MG, CYCLIC (2 TABLETS, TWICE A DAY FOR 28 DAYS ON, 14 DAYS OFF)
     Route: 048
  2. EMCYT [Suspect]
     Active Substance: ESTRAMUSTINE PHOSPHATE SODIUM
     Dosage: 140 MG, CYCLIC [(TWICE A DAY) X 4/6 WEEKS X 3 CYCLES]
     Route: 048
  3. EMCYT [Suspect]
     Active Substance: ESTRAMUSTINE PHOSPHATE SODIUM
     Dosage: 280 MG, CYCLIC (TWO 140 MG, CAPSULES, BY MOUTH, TWICE A DAY/ FOUR WEEK ON, 2 WEEK OFF CYCLE)
     Route: 048
     Dates: start: 201803

REACTIONS (5)
  - Impaired healing [Not Recovered/Not Resolved]
  - Product use issue [Unknown]
  - Onychoclasis [Not Recovered/Not Resolved]
  - Off label use [Unknown]
  - Nail disorder [Not Recovered/Not Resolved]

NARRATIVE: CASE EVENT DATE: 2019
